FAERS Safety Report 6596496-X (Version None)
Quarter: 2010Q1

REPORT INFORMATION
  Report Type: 
  Country: None (occurrence: None)
  Receive Date: 20100223
  Receipt Date: 20100211
  Transmission Date: 20100710
  Serious: Yes (Death, Hospitalization)
  Sender: FDA-Public Use
  Company Number: UA-WYE-H13622610

PATIENT
  Sex: Male
  Weight: 78 kg

DRUGS (2)
  1. TEMSIROLIMUS [Suspect]
     Indication: RENAL CELL CARCINOMA
     Route: 042
     Dates: start: 20091224, end: 20100127
  2. BEVACIZUMAB, TEST ARTICLE IN TEMSIROLIMUS STUDY [Suspect]
     Indication: RENAL CELL CARCINOMA
     Route: 042
     Dates: start: 20091224, end: 20100127

REACTIONS (1)
  - PERIPROCTITIS [None]
